FAERS Safety Report 7085653-4 (Version None)
Quarter: 2010Q4

REPORT INFORMATION
  Report Type: 
  Country: None (occurrence: None)
  Receive Date: 20101105
  Receipt Date: 20101027
  Transmission Date: 20110411
  Serious: Yes (Other)
  Sender: FDA-Public Use
  Company Number: US-PFIZER INC-2010137198

PATIENT
  Sex: Female
  Weight: 51.247 kg

DRUGS (2)
  1. DILANTIN [Suspect]
     Indication: CONVULSION
     Dosage: 100 MG, 3X/DAY
     Route: 048
     Dates: start: 20100101
  2. PHENYTOIN SODIUM [Suspect]
     Indication: CONVULSION
     Dosage: 100 MG, 2X/DAY
     Route: 048
     Dates: start: 20091101

REACTIONS (7)
  - ANOSMIA [None]
  - ANTICONVULSANT DRUG LEVEL DECREASED [None]
  - APHAGIA [None]
  - BLOOD CHOLESTEROL INCREASED [None]
  - CONVULSION [None]
  - EXTRASYSTOLES [None]
  - WEIGHT DECREASED [None]
